FAERS Safety Report 12932621 (Version 1)
Quarter: 2020Q3

REPORT INFORMATION
  Report Type: Report from Study
  Country: BE (occurrence: BE)
  Receive Date: 20161111
  Receipt Date: 20161111
  Transmission Date: 20201104
  Serious: Yes (Death, Life-Threatening)
  Sender: FDA-Public Use
  Company Number: BE-FERRINGPH-2016FE05741

PATIENT

DRUGS (1)
  1. FE 202158 [Suspect]
     Active Substance: SELEPRESSIN
     Indication: SEPTIC SHOCK
     Dosage: UNK
     Route: 041
     Dates: start: 20161021, end: 20161022

REACTIONS (10)
  - Peritonitis [None]
  - Acute respiratory distress syndrome [None]
  - Hyperlactacidaemia [None]
  - Inflammation [None]
  - Escherichia test positive [None]
  - Septic shock [None]
  - Abscess [None]
  - Anuria [None]
  - Large intestine perforation [Fatal]
  - Intestinal ischaemia [None]

NARRATIVE: CASE EVENT DATE: 20161025
